FAERS Safety Report 17846810 (Version 3)
Quarter: 2020Q2

REPORT INFORMATION
  Report Type: Spontaneous
  Country: CA (occurrence: CA)
  Receive Date: 20200601
  Receipt Date: 20200616
  Transmission Date: 20200714
  Serious: Yes (Hospitalization, Other)
  Sender: FDA-Public Use
  Company Number: CA-GLAXOSMITHKLINE-CA2020AMR090946

PATIENT
  Sex: Female

DRUGS (4)
  1. ZEJULA [Suspect]
     Active Substance: NIRAPARIB
     Dosage: 200 MG, QD
     Route: 048
  2. ZEJULA [Suspect]
     Active Substance: NIRAPARIB
     Dosage: 100 MG, QD
     Route: 048
  3. ZEJULA [Suspect]
     Active Substance: NIRAPARIB
     Indication: OVARIAN CANCER RECURRENT
     Dosage: 300 MG, QD
     Route: 048
     Dates: start: 20200505
  4. XARELTO [Suspect]
     Active Substance: RIVAROXABAN
     Indication: PRODUCT USED FOR UNKNOWN INDICATION
     Dosage: UNK

REACTIONS (5)
  - Gastrointestinal haemorrhage [Unknown]
  - Intestinal obstruction [Unknown]
  - Thrombocytopenia [Unknown]
  - Haemoglobin decreased [Unknown]
  - Platelet count decreased [Unknown]
